FAERS Safety Report 18035908 (Version 1)
Quarter: 2020Q3

REPORT INFORMATION
  Report Type: Spontaneous
  Country: US (occurrence: US)
  Receive Date: 20200717
  Receipt Date: 20200717
  Transmission Date: 20201103
  Serious: No
  Sender: FDA-Public Use
  Company Number: None

PATIENT
  Age: 58 Year
  Sex: Female
  Weight: 117.9 kg

DRUGS (17)
  1. ALBUTEROL INHALER [Concomitant]
     Active Substance: ALBUTEROL
  2. FAMOTIDINE. [Concomitant]
     Active Substance: FAMOTIDINE
  3. LOSARTAN. [Concomitant]
     Active Substance: LOSARTAN
  4. MAXALT [Concomitant]
     Active Substance: RIZATRIPTAN BENZOATE
  5. TOPAMAX [Concomitant]
     Active Substance: TOPIRAMATE
  6. MULTIVITAMINS [Concomitant]
     Active Substance: VITAMINS
  7. POTASSIUM CHLORIDE. [Concomitant]
     Active Substance: POTASSIUM CHLORIDE
  8. LYRICA [Concomitant]
     Active Substance: PREGABALIN
  9. TORSEMIDE. [Concomitant]
     Active Substance: TORSEMIDE
  10. BUPROPION SR 150 MG [Suspect]
     Active Substance: BUPROPION
     Indication: DEPRESSION
     Dosage: ?          QUANTITY:1 TABLET(S);?
     Route: 048
     Dates: start: 20200424, end: 20200601
  11. FLUOXETINE [Concomitant]
     Active Substance: FLUOXETINE HYDROCHLORIDE
  12. PREDNISONE. [Concomitant]
     Active Substance: PREDNISONE
  13. LEVOTHYROXINE. [Concomitant]
     Active Substance: LEVOTHYROXINE
  14. OMEPRAZOLE. [Concomitant]
     Active Substance: OMEPRAZOLE
  15. PROLIX [Concomitant]
  16. ATORVASTATIN [Concomitant]
     Active Substance: ATORVASTATIN
  17. CALCIUM [Concomitant]
     Active Substance: CALCIUM

REACTIONS (3)
  - Rash [None]
  - Pain [None]
  - Blister [None]

NARRATIVE: CASE EVENT DATE: 20200601
